FAERS Safety Report 7502297-8 (Version None)
Quarter: 2011Q2

REPORT INFORMATION
  Report Type: 
  Country: None (occurrence: None)
  Receive Date: 20110523
  Receipt Date: 20110523
  Transmission Date: 20111010
  Serious: Yes (Other)
  Sender: FDA-Public Use
  Company Number: None

PATIENT
  Age: 40 Year
  Sex: Female
  Weight: 63.05 kg

DRUGS (1)
  1. OXYCONTIN [Suspect]
     Dosage: 80MG
     Dates: start: 20040505, end: 20110518

REACTIONS (2)
  - FOREIGN BODY [None]
  - DRUG INEFFECTIVE [None]
